FAERS Safety Report 20963127 (Version 2)
Quarter: 2023Q1

REPORT INFORMATION
  Report Type: Spontaneous
  Country: CN (occurrence: CN)
  Receive Date: 20220615
  Receipt Date: 20230203
  Transmission Date: 20230418
  Serious: Yes (Life-Threatening, Hospitalization, Other)
  Sender: FDA-Public Use
  Company Number: CN-NOVARTISPH-NVSC2022CN137802

PATIENT
  Age: 27 Year
  Sex: Female

DRUGS (2)
  1. SACUBITRIL\VALSARTAN [Suspect]
     Active Substance: SACUBITRIL\VALSARTAN
     Indication: Rheumatic heart disease
     Dosage: 25 MG, QD
     Route: 048
     Dates: start: 20220422, end: 20220509
  2. BISOPROLOL FUMARATE [Concomitant]
     Active Substance: BISOPROLOL FUMARATE
     Indication: Rheumatic heart disease
     Dosage: 2.5 MG, QD
     Route: 048
     Dates: start: 20220422, end: 20220518

REACTIONS (5)
  - Hypotension [Recovered/Resolved]
  - Cough [Unknown]
  - Productive cough [Unknown]
  - Anuria [Unknown]
  - Syncope [Unknown]

NARRATIVE: CASE EVENT DATE: 20220506
